FAERS Safety Report 9033663 (Version 1)
Quarter: 2013Q1

REPORT INFORMATION
  Report Type: Spontaneous
  Country: BR (occurrence: BR)
  Receive Date: 20130128
  Receipt Date: 20130128
  Transmission Date: 20140127
  Serious: Yes (Other)
  Sender: FDA-Public Use
  Company Number: BR-AMGEN-BRACT2012080304

PATIENT
  Age: 44 Year
  Sex: Female
  Weight: 60 kg

DRUGS (4)
  1. ENBREL [Suspect]
     Indication: RHEUMATOID ARTHRITIS
     Dosage: 50 MG, QWK
     Route: 058
     Dates: start: 2010, end: 201207
  2. ENBREL [Suspect]
     Dosage: 50 MG, QWK
     Route: 058
     Dates: start: 201207, end: 201207
  3. ARAVA [Concomitant]
     Dosage: 20 MG (ONE TABLET) A DAY
     Dates: start: 2009, end: 2012
  4. CALCIUM [Concomitant]
     Indication: ARTHRITIS
     Dosage: UNK
     Dates: start: 2011

REACTIONS (11)
  - Urinary tract infection [Unknown]
  - Hypersensitivity [Unknown]
  - Local swelling [Unknown]
  - Feeling hot [Unknown]
  - Erythema [Unknown]
  - Headache [Unknown]
  - Pallor [Unknown]
  - Application site pain [Unknown]
  - Application site mass [Unknown]
  - Application site pruritus [Unknown]
  - Application site swelling [Unknown]
